FAERS Safety Report 9878562 (Version 1)
Quarter: 2014Q1

REPORT INFORMATION
  Report Type: Spontaneous
  Country: US (occurrence: US)
  Receive Date: 20140206
  Receipt Date: 20140206
  Transmission Date: 20141002
  Serious: No
  Sender: FDA-Public Use
  Company Number: US-ALLERGAN-1312149US

PATIENT
  Sex: Female

DRUGS (3)
  1. BOTOX [Suspect]
     Indication: SKIN WRINKLING
     Dosage: UNK, SINGLE
     Dates: start: 20130625, end: 20130625
  2. XANAX [Concomitant]
     Indication: INSOMNIA
     Route: 048
  3. ESTROGEN/PROGESTERONE CREAM [Concomitant]
     Indication: MENOPAUSE
     Route: 061

REACTIONS (1)
  - Therapeutic response decreased [Unknown]
